FAERS Safety Report 6987250-5 (Version None)
Quarter: 2010Q3

REPORT INFORMATION
  Report Type: 
  Country: None (occurrence: None)
  Receive Date: 20100827
  Receipt Date: 20100716
  Transmission Date: 20110219
  Serious: No
  Sender: FDA-Public Use
  Company Number: 015766

PATIENT
  Sex: Female
  Weight: 57.6 kg

DRUGS (11)
  1. LACOSAMIDE [Suspect]
     Indication: CONVULSION
     Dosage: SEE IMAGE
     Route: 048
     Dates: start: 20100616, end: 20100601
  2. LACOSAMIDE [Suspect]
     Indication: CONVULSION
     Dosage: SEE IMAGE
     Route: 048
     Dates: start: 20100623, end: 20100601
  3. LACOSAMIDE [Suspect]
     Indication: CONVULSION
     Dosage: SEE IMAGE
     Route: 048
     Dates: start: 20100706, end: 20100712
  4. LACOSAMIDE [Suspect]
     Indication: CONVULSION
     Dosage: SEE IMAGE
     Route: 048
     Dates: start: 20100713, end: 20100716
  5. LACOSAMIDE [Suspect]
     Indication: CONVULSION
     Dosage: SEE IMAGE
     Route: 048
     Dates: start: 20091201
  6. LACOSAMIDE [Suspect]
     Indication: CONVULSION
     Dosage: SEE IMAGE
     Route: 048
     Dates: start: 20100630
  7. KEPPRA [Concomitant]
  8. DILANTIN [Concomitant]
  9. FELBATOL [Concomitant]
  10. PHENOBARBITAL TAB [Concomitant]
  11. ATIVAN [Concomitant]

REACTIONS (4)
  - CONVULSION [None]
  - DRUG LEVEL BELOW THERAPEUTIC [None]
  - MEDICATION ERROR [None]
  - MOOD ALTERED [None]
